FAERS Safety Report 8050720-5 (Version None)
Quarter: 2012Q1

REPORT INFORMATION
  Report Type: 
  Country: None (occurrence: None)
  Receive Date: 20120117
  Receipt Date: 20120117
  Transmission Date: 20120608
  Serious: No
  Sender: FDA-Public Use
  Company Number: None

PATIENT

DRUGS (2)
  1. BUPROPION HYDROCHLORIDE [Suspect]
     Indication: DEPRESSION
     Dosage: 3 PILLS
  2. BUPROPION HYDROCHLORIDE [Concomitant]

REACTIONS (5)
  - ASTHENIA [None]
  - MENTAL IMPAIRMENT [None]
  - PRODUCT SUBSTITUTION ISSUE [None]
  - SOMNOLENCE [None]
  - CONDITION AGGRAVATED [None]
